FAERS Safety Report 15404397 (Version 1)
Quarter: 2018Q3

REPORT INFORMATION
  Report Type: Spontaneous
  Country: US (occurrence: US)
  Receive Date: 20180912
  Receipt Date: 20180912
  Transmission Date: 20181010
  Serious: Yes (Hospitalization)
  Sender: FDA-Public Use
  Company Number: None

PATIENT
  Age: 61 Year
  Sex: Female

DRUGS (1)
  1. ENBREL [Suspect]
     Active Substance: ETANERCEPT
     Route: 058
     Dates: start: 201706

REACTIONS (4)
  - Abdominal discomfort [None]
  - Pulmonary mass [None]
  - Abdominal pain [None]
  - Haematemesis [None]

NARRATIVE: CASE EVENT DATE: 20180908
